FAERS Safety Report 7565636-8 (Version None)
Quarter: 2011Q2

REPORT INFORMATION
  Report Type: 
  Country: None (occurrence: None)
  Receive Date: 20110616
  Receipt Date: 20110610
  Transmission Date: 20111010
  Serious: Yes (Death)
  Sender: FDA-Public Use
  Company Number: 2011001868

PATIENT
  Age: 67 Year
  Sex: Male

DRUGS (2)
  1. TARCEVA [Suspect]
     Indication: PANCREATIC CARCINOMA
     Dosage: 100 MG, UID/QD, ORAL; 100 MG, UID/QD, ORAL
     Route: 048
     Dates: start: 20110330
  2. TARCEVA [Suspect]
     Indication: PANCREATIC CARCINOMA
     Dosage: 100 MG, UID/QD, ORAL; 100 MG, UID/QD, ORAL
     Route: 048
     Dates: start: 20101228

REACTIONS (2)
  - HALLUCINATION [None]
  - DECREASED APPETITE [None]
